FAERS Safety Report 16012913 (Version 5)
Quarter: 2022Q4

REPORT INFORMATION
  Report Type: Other
  Country: US (occurrence: None)
  Receive Date: 20190227
  Receipt Date: 20221115
  Transmission Date: 20230113
  Serious: Yes (Other)
  Sender: FDA-Public Use
  Company Number: US-ROCHE-2159435

PATIENT
  Age: 70 Year
  Sex: Female
  Weight: 68.100 kg

DRUGS (10)
  1. OCREVUS [Suspect]
     Active Substance: OCRELIZUMAB
     Indication: Relapsing-remitting multiple sclerosis
     Dosage: DATE OF TREATMENT :01/AUG/2018, 01/FEB/2019, 02/AUG/2019, 13/MAR/2020, 25/MAR/2022
     Route: 042
     Dates: start: 201801
  2. OCREVUS [Suspect]
     Active Substance: OCRELIZUMAB
     Dosage: SECOND HALF DOSE
     Route: 042
     Dates: start: 201802
  3. OCREVUS [Suspect]
     Active Substance: OCRELIZUMAB
     Route: 042
     Dates: start: 201802
  4. HYDROCODONE [Concomitant]
     Active Substance: HYDROCODONE
  5. LYRICA [Concomitant]
     Active Substance: PREGABALIN
  6. BOTOX [Concomitant]
     Active Substance: ONABOTULINUMTOXINA
  7. NEXIUM [Concomitant]
     Active Substance: ESOMEPRAZOLE MAGNESIUM
  8. MODAFINIL [Concomitant]
     Active Substance: MODAFINIL
  9. TYLENOL [Concomitant]
     Active Substance: ACETAMINOPHEN
  10. BUTALBITAL, ACETAMINOPHEN, AND CAFFEINE [Concomitant]
     Active Substance: ACETAMINOPHEN\BUTALBITAL\CAFFEINE

REACTIONS (7)
  - Cognitive disorder [Not Recovered/Not Resolved]
  - Somnolence [Recovered/Resolved]
  - Throat irritation [Recovered/Resolved]
  - Ear pruritus [Recovered/Resolved]
  - Influenza [Recovering/Resolving]
  - Migraine [Unknown]
  - Depressed level of consciousness [Unknown]

NARRATIVE: CASE EVENT DATE: 20190201
